FAERS Safety Report 11149091 (Version 1)
Quarter: 2015Q2

REPORT INFORMATION
  Report Type: Spontaneous
  Country: RO (occurrence: RO)
  Receive Date: 20150529
  Receipt Date: 20150529
  Transmission Date: 20150821
  Serious: Yes (Other)
  Sender: FDA-Public Use
  Company Number: RO-TOLMAR, INC.-2015RO004759

PATIENT
  Age: 52 Year
  Sex: Male

DRUGS (1)
  1. ELIGARD [Suspect]
     Active Substance: LEUPROLIDE ACETATE
     Indication: PROSTATE CANCER
     Dosage: 22.5 MG, EVERY 3 MONTH
     Route: 065

REACTIONS (3)
  - Metastases to bone [Unknown]
  - Blood testosterone increased [Recovered/Resolved]
  - Prostatic specific antigen increased [Recovered/Resolved]
